FAERS Safety Report 9117282 (Version 2)
Quarter: 2013Q2

REPORT INFORMATION
  Report Type: Spontaneous
  Country: DE (occurrence: DE)
  Receive Date: 20130225
  Receipt Date: 20130528
  Transmission Date: 20140414
  Serious: Yes (Other)
  Sender: FDA-Public Use
  Company Number: DE-JNJFOC-20130211206

PATIENT
  Age: 83 Year
  Sex: Male

DRUGS (6)
  1. XARELTO [Suspect]
     Indication: EMBOLISM VENOUS
     Route: 048
     Dates: start: 20130108, end: 20130114
  2. XARELTO [Suspect]
     Indication: DEEP VEIN THROMBOSIS
     Route: 048
     Dates: start: 20130108, end: 20130114
  3. MIRTAZAPIN [Concomitant]
     Route: 048
  4. MADOPAR [Concomitant]
     Route: 048
  5. AMLODIPINE [Concomitant]
     Route: 048
  6. TAMSULOSIN [Concomitant]
     Route: 048

REACTIONS (2)
  - Renal failure [Recovered/Resolved]
  - Haemoglobin decreased [Recovered/Resolved]
